FAERS Safety Report 5022135-5 (Version None)
Quarter: 2006Q2

REPORT INFORMATION
  Report Type: 
  Country: None (occurrence: None)
  Receive Date: 20060605
  Receipt Date: 20060517
  Transmission Date: 20061013
  Serious: Yes (Other)
  Sender: FDA-Public Use
  Company Number: 6022709

PATIENT
  Age: 51 Year
  Sex: Female

DRUGS (1)
  1. MONOCOR (BISOPROLOL FUMARATE) [Suspect]

REACTIONS (6)
  - ANGIONEUROTIC OEDEMA [None]
  - FACE OEDEMA [None]
  - OEDEMA MOUTH [None]
  - RASH [None]
  - SPEECH DISORDER [None]
  - URTICARIA [None]
